FAERS Safety Report 14976694 (Version 8)
Quarter: 2018Q3

REPORT INFORMATION
  Report Type: Spontaneous
  Country: DE (occurrence: DE)
  Receive Date: 20180605
  Receipt Date: 20180903
  Transmission Date: 20181010
  Serious: Yes (Death, Life-Threatening, Hospitalization, Other)
  Sender: FDA-Public Use
  Company Number: DE-BAUSCH-BL-2018-015838

PATIENT
  Sex: Male

DRUGS (8)
  1. DICLOFENAC SODIUM. [Suspect]
     Active Substance: DICLOFENAC SODIUM
     Indication: EXTRASKELETAL OSSIFICATION
     Dosage: 1?0?1
     Route: 048
  2. METAMIZOLE SODIUM [Suspect]
     Active Substance: METAMIZOLE SODIUM
     Indication: PAIN
     Dosage: 1?1?1?1
     Route: 048
  3. HYDROCHLOROTHIAZIDE/RAMIPRIL [Suspect]
     Active Substance: HYDROCHLOROTHIAZIDE\RAMIPRIL
     Indication: HYPERTENSION
     Dosage: 1?0?0.5; 5 MG RAMIPRIL/25 MG HYDROCHLOROTHIAZID (STRENGTH REPORTED AS 1 G)
     Route: 048
  4. NOREPINEPHRINE. [Suspect]
     Active Substance: NOREPINEPHRINE
     Indication: TACHYCARDIA
  5. PANTOPRAZOLE [Concomitant]
     Active Substance: PANTOPRAZOLE
     Indication: GASTRIC DISORDER
     Dosage: 1?0?0
     Route: 048
  6. HYDROCHLOROTHIAZIDE/RAMIPRIL [Suspect]
     Active Substance: HYDROCHLOROTHIAZIDE\RAMIPRIL
     Route: 048
  7. BISOPROLOL [Concomitant]
     Active Substance: BISOPROLOL
     Indication: PRODUCT USED FOR UNKNOWN INDICATION
     Dosage: 1?0?0
     Route: 048
  8. NOREPINEPHRINE. [Suspect]
     Active Substance: NOREPINEPHRINE
     Indication: ARRHYTHMIA
     Dosage: BW/MIN
     Route: 065

REACTIONS (14)
  - Agranulocytosis [Fatal]
  - Arrhythmia [Fatal]
  - Renal impairment [Fatal]
  - Restlessness [Fatal]
  - Septic shock [Fatal]
  - Multiple organ dysfunction syndrome [Fatal]
  - Abscess [Fatal]
  - Tachycardia [Fatal]
  - Pulse abnormal [Fatal]
  - Leukopenia [Fatal]
  - Disorientation [Fatal]
  - Leptotrichia infection [Fatal]
  - Pancytopenia [Fatal]
  - Stomatococcal infection [Fatal]
